FAERS Safety Report 5821280-1 (Version None)
Quarter: 2008Q3

REPORT INFORMATION
  Report Type: 
  Country: None (occurrence: None)
  Receive Date: 20080722
  Receipt Date: 20080722
  Transmission Date: 20090109
  Serious: No
  Sender: FDA-Public Use
  Company Number: None

PATIENT
  Sex: Female

DRUGS (2)
  1. LITHIUM ER 300 [Suspect]
     Dosage: 900MG QD PO
     Route: 048
     Dates: start: 20080511, end: 20080711
  2. DEPAKOTE [Suspect]
     Dosage: 1500MG QD PO
     Route: 048
     Dates: start: 20080601, end: 20080711

REACTIONS (1)
  - ALOPECIA [None]
